FAERS Safety Report 5254928-3 (Version None)
Quarter: 2007Q1

REPORT INFORMATION
  Report Type: 
  Country: None (occurrence: None)
  Receive Date: 20070228
  Receipt Date: 20070212
  Transmission Date: 20070707
  Serious: Yes (Death)
  Sender: FDA-Public Use
  Company Number: 2007S1000508

PATIENT
  Age: 60 Year
  Sex: Female

DRUGS (2)
  1. FUROSEMIDE [Suspect]
     Indication: OEDEMA
     Dates: end: 20061201
  2. EDECRIN [Suspect]
     Indication: OEDEMA
     Dosage: ORAL
     Route: 048
     Dates: start: 20061201

REACTIONS (5)
  - DRUG INEFFECTIVE [None]
  - ERYTHEMA [None]
  - RASH [None]
  - SKIN EXFOLIATION [None]
  - URTICARIA [None]
